FAERS Safety Report 4364354-7 (Version None)
Quarter: 2004Q2

REPORT INFORMATION
  Report Type: 
  Country: None (occurrence: None)
  Receive Date: 20040525
  Receipt Date: 20040430
  Transmission Date: 20050107
  Serious: Yes (Other)
  Sender: FDA-Public Use
  Company Number: PHBS2004VE05977

PATIENT
  Age: 69 Year
  Sex: Male

DRUGS (7)
  1. ZELMAC [Suspect]
     Indication: IRRITABLE BOWEL SYNDROME
     Dosage: 6 MG, BID
     Route: 048
     Dates: start: 20040420
  2. ZELMAC [Suspect]
     Route: 048
     Dates: start: 20030801, end: 20031001
  3. ZELMAC [Suspect]
     Route: 048
  4. PENTOXIFYLLINE [Concomitant]
     Indication: MIGRAINE
     Dosage: 400 MG/DAY
     Route: 048
  5. ALPHAGAN [Concomitant]
     Indication: GLAUCOMA
     Dosage: 1 DF, BID
  6. BLOKIUM [Concomitant]
     Indication: HYPERTENSION
     Dosage: 50 MG/DAY
     Route: 048
  7. LUMIGAR [Concomitant]
     Indication: GLAUCOMA
     Route: 031

REACTIONS (2)
  - INTRAOCULAR PRESSURE INCREASED [None]
  - VISION BLURRED [None]
